FAERS Safety Report 5496430-X (Version None)
Quarter: 2007Q4

REPORT INFORMATION
  Report Type: 
  Country: None (occurrence: None)
  Receive Date: 20071025
  Receipt Date: 20071023
  Transmission Date: 20080405
  Serious: Yes (Hospitalization, Disabling)
  Sender: FDA-Public Use
  Company Number: US-BAYER-200712221BCC

PATIENT
  Age: 10 Year
  Sex: Female
  Weight: 52 kg

DRUGS (4)
  1. RID LICE SHAMPOO [Suspect]
     Indication: LICE INFESTATION
     Route: 061
     Dates: start: 20061001
  2. RID LICE SHAMPOO [Suspect]
     Route: 061
     Dates: start: 20070201
  3. RID LICE SHAMPOO [Suspect]
     Route: 061
     Dates: start: 20070301
  4. RID LICE SHAMPOO [Suspect]
     Route: 061
     Dates: start: 20070601

REACTIONS (5)
  - ABASIA [None]
  - ASTHENIA [None]
  - DISORIENTATION [None]
  - MALAISE [None]
  - PYREXIA [None]
